FAERS Safety Report 9947553 (Version 1)
Quarter: 2014Q1

REPORT INFORMATION
  Report Type: Report from Study
  Country: US (occurrence: US)
  Receive Date: 20140303
  Receipt Date: 20140303
  Transmission Date: 20141002
  Serious: No
  Sender: FDA-Public Use
  Company Number: US-ABBVIE-13P-163-1062657-00

PATIENT
  Age: 51 Year
  Sex: Female

DRUGS (8)
  1. HUMIRA [Suspect]
     Indication: RHEUMATOID ARTHRITIS
     Dates: start: 20130210
  2. SPIRONOLACTONE [Concomitant]
     Indication: HYPERTRICHOSIS
     Dosage: 50MG DAILY
  3. CITALOPRAM [Concomitant]
     Indication: DEPRESSION
     Dosage: 20MG DAILY
  4. SIMVASTATIN [Concomitant]
     Indication: BLOOD CHOLESTEROL INCREASED
     Dosage: AT BEDTIME
  5. METFORMIN [Concomitant]
     Indication: TYPE 2 DIABETES MELLITUS
  6. LISINOPRIL HCTZ [Concomitant]
     Indication: HYPERTENSION
     Dosage: 10/12MG DAILY
  7. ASPIRIN [Concomitant]
     Indication: CARDIAC DISORDER
  8. MULTIVITAMIN [Concomitant]
     Indication: PRODUCT USED FOR UNKNOWN INDICATION

REACTIONS (1)
  - Injection site pain [Recovered/Resolved]
